APPROVED DRUG PRODUCT: ORALONE
Active Ingredient: TRIAMCINOLONE ACETONIDE
Strength: 0.1%
Dosage Form/Route: PASTE;DENTAL
Application: A071383 | Product #001
Applicant: SUN PHARMA CANADA INC
Approved: Jul 6, 1987 | RLD: No | RS: No | Type: DISCN